FAERS Safety Report 7184303-6 (Version None)
Quarter: 2010Q4

REPORT INFORMATION
  Report Type: 
  Country: None (occurrence: None)
  Receive Date: 20101222
  Receipt Date: 20100520
  Transmission Date: 20110411
  Serious: Yes (Other)
  Sender: FDA-Public Use
  Company Number: US-AMGEN-KDL413582

PATIENT

DRUGS (4)
  1. ENBREL [Suspect]
     Indication: PRODUCT USED FOR UNKNOWN INDICATION
     Dosage: 25 MG, QWK
     Route: 058
  2. TRAMADOL HYDROCHLORIDE [Concomitant]
     Dosage: 50 MG, UNK
  3. ALPRAZOLAM [Concomitant]
     Dosage: .25 MG, UNK
  4. CALCIUM WITH VITAMIN D [Concomitant]
     Dosage: UNK UNK, UNK

REACTIONS (2)
  - BRONCHITIS [None]
  - PNEUMONIA [None]
